FAERS Safety Report 10005385 (Version 1)
Quarter: 2014Q1

REPORT INFORMATION
  Report Type: Spontaneous
  Country: US (occurrence: US)
  Receive Date: 20140312
  Receipt Date: 20140312
  Transmission Date: 20141002
  Serious: Yes (Other)
  Sender: FDA-Public Use
  Company Number: US-RB-064444-14

PATIENT
  Age: 24 Year
  Sex: Female

DRUGS (6)
  1. BUPRENORPHINE GENERIC [Suspect]
     Indication: DRUG DEPENDENCE
     Route: 060
     Dates: start: 201208, end: 201306
  2. SUBOXONE FILM [Suspect]
     Dosage: SUBOXONE FILM
     Route: 060
     Dates: start: 201306, end: 2014
  3. SUBOXONE FILM [Suspect]
     Dosage: SUBOXONE FILM; SELF TAPERING AND CUTTING
     Route: 060
     Dates: start: 201402, end: 20140227
  4. SUBOXONE FILM [Suspect]
     Indication: DRUG DEPENDENCE
     Dosage: SUBOXONE FILM; TOOK ONE PIECE OF FILM
     Route: 060
     Dates: start: 20140301, end: 20140301
  5. WELLBUTRIN [Suspect]
     Indication: DEPRESSION
     Dosage: DOSING DETAILS UNKNOWN
     Route: 048
     Dates: start: 201308, end: 201309
  6. LEXAPRO [Suspect]
     Indication: DEPRESSION
     Route: 048
     Dates: start: 2013, end: 201402

REACTIONS (13)
  - Maternal exposure during pregnancy [Recovered/Resolved]
  - Foetal growth restriction [Recovered/Resolved]
  - Premature delivery [Recovered/Resolved]
  - Depressed mood [Recovered/Resolved]
  - Heart rate increased [Recovered/Resolved]
  - Convulsion [Recovered/Resolved]
  - Nausea [Recovered/Resolved]
  - Vomiting [Recovered/Resolved]
  - Lethargy [Recovered/Resolved]
  - Intentional underdose [Recovered/Resolved]
  - Wrong technique in drug usage process [Recovered/Resolved]
  - Drug withdrawal syndrome [Not Recovered/Not Resolved]
  - Depression [Unknown]
